FAERS Safety Report 20245560 (Version 8)
Quarter: 2022Q3

REPORT INFORMATION
  Report Type: Report from Study
  Country: US (occurrence: US)
  Receive Date: 20211229
  Receipt Date: 20220720
  Transmission Date: 20221027
  Serious: No
  Sender: FDA-Public Use
  Company Number: US-NOVARTISTESTPH-NVSC2021US298172

PATIENT
  Sex: Male

DRUGS (3)
  1. ENTRESTO [Suspect]
     Active Substance: SACUBITRIL\VALSARTAN
     Indication: Product used for unknown indication
     Dosage: 1 DOSAGE FORM, BID
     Route: 065
     Dates: start: 20211109
  2. METOPROLOL [Suspect]
     Active Substance: METOPROLOL
     Indication: Product used for unknown indication
     Dosage: UNK UNK, BID
     Route: 065
     Dates: start: 202111
  3. METOPROLOL [Suspect]
     Active Substance: METOPROLOL
     Dosage: UNK, BID
     Route: 065

REACTIONS (14)
  - Lethargy [Recovering/Resolving]
  - Sluggishness [Recovering/Resolving]
  - Implant site reaction [Recovering/Resolving]
  - Paranoia [Recovering/Resolving]
  - Breast tenderness [Unknown]
  - Dysgeusia [Recovering/Resolving]
  - Burning mouth syndrome [Unknown]
  - Muscle spasms [Recovering/Resolving]
  - Hypotension [Recovering/Resolving]
  - COVID-19 [Recovering/Resolving]
  - Cough [Recovering/Resolving]
  - Dyspnoea [Not Recovered/Not Resolved]
  - Drug ineffective [Unknown]
  - Inappropriate schedule of product administration [Unknown]

NARRATIVE: CASE EVENT DATE: 20210101
